FAERS Safety Report 6489926-5 (Version None)
Quarter: 2009Q4

REPORT INFORMATION
  Report Type: 
  Country: None (occurrence: None)
  Receive Date: 20091211
  Receipt Date: 20091207
  Transmission Date: 20100525
  Serious: Yes (Life-Threatening)
  Sender: FDA-Public Use
  Company Number: FR-SANOFI-AVENTIS-2009SA000102

PATIENT
  Age: 84 Year
  Sex: Female

DRUGS (12)
  1. ARAVA [Suspect]
     Route: 048
     Dates: start: 20090701, end: 20091007
  2. DERMOVAL [Suspect]
     Route: 061
  3. ACTISKENAN [Concomitant]
     Indication: PAIN
     Route: 048
  4. ADANCOR [Concomitant]
     Indication: ANGINA PECTORIS
     Route: 048
  5. ARICEPT [Concomitant]
     Indication: DEMENTIA
     Route: 048
  6. CLARITIN [Concomitant]
     Route: 048
  7. HEMIGOXINE NATIVELLE [Concomitant]
     Indication: TACHYCARDIA
     Route: 048
     Dates: start: 20090818
  8. FUMAFER [Concomitant]
     Route: 048
  9. RISPERDAL [Concomitant]
     Route: 048
  10. VOGALENE [Concomitant]
     Indication: NAUSEA
     Route: 048
  11. TRIFLUCAN [Concomitant]
     Indication: CANDIDIASIS
     Route: 048
  12. ESOMEPRAZOLE [Concomitant]
     Indication: GASTRIC ULCER

REACTIONS (2)
  - CACHEXIA [None]
  - GENERAL PHYSICAL HEALTH DETERIORATION [None]
